FAERS Safety Report 26204216 (Version 1)
Quarter: 2025Q4

REPORT INFORMATION
  Report Type: Spontaneous
  Country: CN (occurrence: CN)
  Receive Date: 20251226
  Receipt Date: 20251226
  Transmission Date: 20260117
  Serious: Yes (Other)
  Sender: BAUSCH AND LOMB
  Company Number: CN-BAUSCH-BH-2025-022893

PATIENT
  Age: 5 Year
  Sex: Female

DRUGS (2)
  1. ELIDEL [Suspect]
     Active Substance: PIMECROLIMUS
     Indication: Lichen sclerosus
     Dosage: UNK
     Route: 065
     Dates: start: 202512, end: 20251211
  2. GLYCOSAMINOGLYCANS [Suspect]
     Active Substance: GLYCOSAMINOGLYCANS
     Indication: Lichen sclerosus
     Dosage: UNK
     Route: 065
     Dates: start: 202512, end: 20251211

REACTIONS (4)
  - Vulval abscess [Not Recovered/Not Resolved]
  - Application site pustules [Not Recovered/Not Resolved]
  - Application site pain [Not Recovered/Not Resolved]
  - Product use in unapproved indication [Unknown]

NARRATIVE: CASE EVENT DATE: 20251201
